FAERS Safety Report 10768859 (Version 1)
Quarter: 2015Q1

REPORT INFORMATION
  Report Type: Spontaneous
  Country: GB (occurrence: GB)
  Receive Date: 20150206
  Receipt Date: 20150206
  Transmission Date: 20150721
  Serious: Yes (Hospitalization)
  Sender: FDA-Public Use
  Company Number: GB-TEVA-537533ISR

PATIENT
  Age: 81 Year
  Sex: Male
  Weight: 72 kg

DRUGS (7)
  1. FUROSEMIDE. [Suspect]
     Active Substance: FUROSEMIDE
     Indication: CARDIAC FAILURE
     Dosage: 40 MILLIGRAM DAILY;
     Route: 048
     Dates: start: 20110101
  2. ATORVASTATIN [Concomitant]
     Active Substance: ATORVASTATIN
  3. LISINOPRIL. [Concomitant]
     Active Substance: LISINOPRIL
  4. WARFARIN [Concomitant]
     Active Substance: WARFARIN
  5. BISOPROLOL [Concomitant]
     Active Substance: BISOPROLOL
  6. ISOSORBIDE MONONITRATE. [Concomitant]
     Active Substance: ISOSORBIDE MONONITRATE
  7. LANSOPRAZOLE. [Concomitant]
     Active Substance: LANSOPRAZOLE

REACTIONS (7)
  - Cardiac failure [Unknown]
  - Arrhythmia [Unknown]
  - Hypomagnesaemia [Recovered/Resolved]
  - Syncope [Unknown]
  - Condition aggravated [Unknown]
  - Pulmonary oedema [Unknown]
  - Hypocalcaemia [Unknown]

NARRATIVE: CASE EVENT DATE: 20150113
